FAERS Safety Report 15461144 (Version 3)
Quarter: 2019Q1

REPORT INFORMATION
  Report Type: Report from Study
  Country: JP (occurrence: JP)
  Receive Date: 20181003
  Receipt Date: 20190221
  Transmission Date: 20190417
  Serious: Yes (Hospitalization, Other)
  Sender: FDA-Public Use
  Company Number: JP-BRISTOL-MYERS SQUIBB COMPANY-BMS-2018-090742

PATIENT
  Age: 69 Year
  Sex: Female
  Weight: 43 kg

DRUGS (16)
  1. SENNA [Concomitant]
     Active Substance: SENNA LEAF\SENNOSIDES\SENNOSIDES A AND B
     Indication: CONSTIPATION
     Dosage: 1 DF, QD
     Route: 048
     Dates: start: 20180502
  2. CALONAL [Concomitant]
     Active Substance: ACETAMINOPHEN
     Indication: HEADACHE
     Dosage: 2 DF
     Route: 048
     Dates: start: 20181106
  3. MAGNESIUM OXIDE. [Concomitant]
     Active Substance: MAGNESIUM OXIDE
     Indication: CONSTIPATION
     Dosage: 250 MG
     Route: 048
     Dates: start: 20170624
  4. HEPARINOID [Concomitant]
     Active Substance: CHONDROITIN SULFATE (BOVINE)
     Indication: SKIN DISORDER
     Dosage: 1 DF, UNK
     Route: 061
     Dates: start: 20181017
  5. DIACORT [Concomitant]
     Active Substance: DIFLORASONE DIACETATE
     Indication: SKIN DISORDER
     Dosage: 1 DF, UNK
     Route: 061
     Dates: start: 20181012
  6. PIARLE [Concomitant]
     Indication: ENCEPHALOPATHY
     Dosage: 15 ML, Q8H
     Route: 048
     Dates: start: 20180927
  7. LOCOID [Concomitant]
     Active Substance: HYDROCORTISONE BUTYRATE
     Indication: SKIN DISORDER
     Dosage: 1 DF, UNK
     Route: 061
     Dates: start: 20181017
  8. LENVATINIB [Suspect]
     Active Substance: LENVATINIB
     Indication: HEPATOCELLULAR CARCINOMA
     Dosage: 8 MG, QD
     Route: 048
     Dates: start: 20180919
  9. BARACLUDE [Concomitant]
     Active Substance: ENTECAVIR
     Indication: HEPATIC CIRRHOSIS
     Dosage: 0.5 MG, EVERYDAY
     Route: 048
     Dates: start: 20130410
  10. AZULENE [Concomitant]
     Active Substance: AZULENE
     Indication: ORAL PAIN
     Dosage: 1 DF, UNK
     Route: 061
     Dates: start: 20181024
  11. AMLODIPINE [Concomitant]
     Active Substance: AMLODIPINE BESYLATE
     Indication: HYPERTENSION
     Dosage: 1 DF:
     Route: 048
     Dates: start: 20180929
  12. PL [Concomitant]
     Active Substance: ACETAMINOPHEN\CAFFEINE\PROMETHAZINE\SALICYLAMIDE
     Indication: RHINORRHOEA
     Dosage: 1 DF
     Route: 048
     Dates: start: 20181004
  13. DEXALTIN [Concomitant]
     Active Substance: DEXAMETHASONE
     Indication: ORAL PAIN
     Dosage: 1 DF, UNK
     Route: 061
     Dates: start: 20181024
  14. VENAPASTA [Concomitant]
     Indication: SKIN DISORDER
     Dosage: 1 DF, UNK
     Route: 061
     Dates: start: 20190206
  15. NIVOLUMAB [Suspect]
     Active Substance: NIVOLUMAB
     Indication: HEPATOCELLULAR CARCINOMA
     Dosage: 240 MG, UNK
     Route: 041
     Dates: start: 20180919
  16. SODIUM RABEPRAZOLE [Concomitant]
     Active Substance: RABEPRAZOLE SODIUM
     Indication: NAUSEA
     Dosage: 1 DF
     Route: 048
     Dates: start: 20190109

REACTIONS (2)
  - Oedema [Not Recovered/Not Resolved]
  - Depressed level of consciousness [Recovered/Resolved]

NARRATIVE: CASE EVENT DATE: 20180925
